APPROVED DRUG PRODUCT: NEO-DELTA-CORTEF
Active Ingredient: NEOMYCIN SULFATE; PREDNISOLONE ACETATE
Strength: EQ 3.5MG BASE/GM;0.25%
Dosage Form/Route: OINTMENT;OPHTHALMIC
Application: A061039 | Product #002
Applicant: PHARMACIA AND UPJOHN CO
Approved: Approved Prior to Jan 1, 1982 | RLD: No | RS: No | Type: DISCN